FAERS Safety Report 7681234-X (Version None)
Quarter: 2011Q3

REPORT INFORMATION
  Report Type: 
  Country: None (occurrence: None)
  Receive Date: 20110810
  Receipt Date: 20110727
  Transmission Date: 20111222
  Serious: Yes (Hospitalization, Other)
  Sender: FDA-Public Use
  Company Number: 1000021014

PATIENT
  Sex: Male

DRUGS (2)
  1. ROFLUMILAST(ROFLUMILAST) (TABLETS) [Suspect]
     Indication: CHRONIC OBSTRUCTIVE PULMONARY DISEASE
     Dosage: 500 MCG (500 MCG,1 IN 1 D),ORAL
     Route: 048
     Dates: start: 20110321, end: 20110425
  2. SULFAMETHOXAZOLE AND TRIMETHOPRIM [Suspect]
     Indication: RESPIRATORY TRACT INFECTION
     Dosage: ORAL
     Route: 048
     Dates: start: 20110415, end: 20110425

REACTIONS (7)
  - ALCALIGENES INFECTION [None]
  - DISCOMFORT [None]
  - BRAIN OEDEMA [None]
  - ASTHENIA [None]
  - HYPONATRAEMIA [None]
  - RESPIRATORY TRACT INFECTION [None]
  - OEDEMA [None]
